FAERS Safety Report 12469665 (Version 1)
Quarter: 2016Q2

REPORT INFORMATION
  Report Type: Report from Study
  Country: CA (occurrence: CA)
  Receive Date: 20160615
  Receipt Date: 20160615
  Transmission Date: 20160815
  Serious: Yes (Other)
  Sender: FDA-Public Use
  Company Number: CA-ABBVIE-16P-028-1649518-00

PATIENT
  Sex: Male
  Weight: 80.2 kg

DRUGS (1)
  1. VIEKIRA PAK [Suspect]
     Active Substance: DASABUVIR\OMBITASVIR\PARITAPREVIR\RITONAVIR
     Indication: HEPATITIS C
     Dosage: ONE-MONTH TREATMENT PACK
     Route: 048
     Dates: start: 20160510

REACTIONS (2)
  - Device dislocation [Unknown]
  - Infection [Unknown]
